FAERS Safety Report 12267548 (Version 3)
Quarter: 2017Q2

REPORT INFORMATION
  Report Type: Spontaneous
  Country: US (occurrence: US)
  Receive Date: 20160414
  Receipt Date: 20170524
  Transmission Date: 20170830
  Serious: Yes (Congenital Anomaly, Other)
  Sender: FDA-Public Use
  Company Number: US-DYAX CORP.-2016DX000119

PATIENT
  Age: 32 Year
  Sex: Female
  Weight: 72.8 kg

DRUGS (1)
  1. KALBITOR [Suspect]
     Active Substance: ECALLANTIDE
     Indication: HEREDITARY ANGIOEDEMA
     Dosage: 30 MG, AS REQ^D
     Route: 058
     Dates: start: 20160330, end: 20170111

REACTIONS (2)
  - Abortion induced [Recovered/Resolved]
  - Anencephaly [Recovered/Resolved]

NARRATIVE: CASE EVENT DATE: 20160406
